FAERS Safety Report 22307917 (Version 2)
Quarter: 2023Q2

REPORT INFORMATION
  Report Type: Spontaneous
  Country: GB (occurrence: GB)
  Receive Date: 20230511
  Receipt Date: 20230523
  Transmission Date: 20230721
  Serious: Yes (Death, Hospitalization)
  Sender: FDA-Public Use
  Company Number: GB-ROCHE-2310882

PATIENT
  Age: 50 Year
  Sex: Female
  Weight: 77.099 kg

DRUGS (3)
  1. CAPECITABINE [Suspect]
     Active Substance: CAPECITABINE
     Indication: Triple negative breast cancer
     Dosage: MOST RECENT DOSE PRIOR TO ONSET OF ADVERSE EVENT: 24/APR/2019?DAILY DOSE: 2000 MILLIGRAM
     Route: 048
     Dates: start: 20190410
  2. ATEZOLIZUMAB [Suspect]
     Active Substance: ATEZOLIZUMAB
     Indication: Triple negative breast cancer
     Dosage: MOST RECENT DOSE PRIOR TO ONSET OF ADVERSE EVENT: 10/APR/2019
     Route: 042
     Dates: start: 20190410
  3. CHLOROFORM\CODEINE PHOSPHATE\DRIMIA MARITIMA BULB [Concomitant]
     Active Substance: CHLOROFORM\CODEINE PHOSPHATE\DRIMIA MARITIMA BULB
     Indication: Cough
     Dates: start: 20190409

REACTIONS (2)
  - Pneumothorax [Fatal]
  - Jugular vein thrombosis [Not Recovered/Not Resolved]

NARRATIVE: CASE EVENT DATE: 20190425
